FAERS Safety Report 14739050 (Version 1)
Quarter: 2018Q2

REPORT INFORMATION
  Report Type: Spontaneous
  Country: DE (occurrence: DE)
  Receive Date: 20180410
  Receipt Date: 20180410
  Transmission Date: 20180711
  Serious: No
  Sender: FDA-Public Use
  Company Number: DE-LUPIN PHARMACEUTICALS INC.-2018-01299

PATIENT
  Sex: Female

DRUGS (1)
  1. OXYCODONE HYDROCHLORIDE TABLETS [Suspect]
     Active Substance: OXYCODONE HYDROCHLORIDE
     Indication: PRODUCT USED FOR UNKNOWN INDICATION
     Dosage: 10 MG, BID,  IN THE MORNING AND EVENING
     Route: 065

REACTIONS (2)
  - No adverse event [Unknown]
  - Drug prescribing error [Unknown]
